FAERS Safety Report 10305749 (Version 1)
Quarter: 2014Q3

REPORT INFORMATION
  Report Type: Spontaneous
  Country: TW (occurrence: TW)
  Receive Date: 20140715
  Receipt Date: 20140715
  Transmission Date: 20150326
  Serious: Yes (Other)
  Sender: FDA-Public Use
  Company Number: ALCN2014TW003916

PATIENT
  Age: 10 Year
  Sex: Female

DRUGS (1)
  1. ALCAINE [Suspect]
     Active Substance: PROPARACAINE HYDROCHLORIDE
     Route: 047

REACTIONS (4)
  - Chest discomfort [Unknown]
  - Hypotension [Unknown]
  - Dyspnoea [Unknown]
  - Presyncope [Unknown]
